FAERS Safety Report 4733095-6 (Version None)
Quarter: 2005Q3

REPORT INFORMATION
  Report Type: 
  Country: None (occurrence: None)
  Receive Date: 20050729
  Receipt Date: 20050721
  Transmission Date: 20060218
  Serious: Yes (Hospitalization, Other)
  Sender: FDA-Public Use
  Company Number: HQWYE399922JUL05

PATIENT
  Age: 64 Year
  Sex: Male

DRUGS (6)
  1. OROKEN (CEFIXIME, TABLET) [Suspect]
     Indication: SUPERINFECTION
     Dosage: 400 MG 1X PER 1 DAY ORAL
     Route: 048
     Dates: start: 20050530, end: 20050602
  2. CLAFORAN [Suspect]
     Indication: SUPERINFECTION
     Dosage: INTRAVENOUS
     Route: 042
     Dates: start: 20050525
  3. OFLOXACIN [Suspect]
     Indication: SUPERINFECTION
     Dosage: INTRAVENOUS
     Route: 042
     Dates: start: 20050525
  4. NIZORAL [Concomitant]
  5. THEOPHYLLINE [Concomitant]
  6. ACETAMINOPHEN [Concomitant]

REACTIONS (1)
  - THROMBOCYTHAEMIA [None]
